FAERS Safety Report 5224802-7 (Version None)
Quarter: 2007Q1

REPORT INFORMATION
  Report Type: 
  Country: None (occurrence: None)
  Receive Date: 20070131
  Receipt Date: 20070112
  Transmission Date: 20070707
  Serious: Yes (Hospitalization, Other)
  Sender: FDA-Public Use
  Company Number: JP-BRISTOL-MYERS SQUIBB COMPANY-13650031

PATIENT
  Age: 78 Year
  Sex: Female

DRUGS (8)
  1. SINEMET [Suspect]
     Dosage: 15JUL06-18JUL06=1/DAY, 19-JUL-2006+2/DAY, 21JUL06-23JUL06=3/DAY, 24JUL06-25JUL06=1/DAY
  2. MAINTATE [Concomitant]
  3. GASTROM [Concomitant]
  4. DEPAS [Concomitant]
  5. ASPIRIN [Concomitant]
  6. MAGNESIUM OXIDE [Concomitant]
  7. SENNA [Concomitant]
  8. ESTAZOLAM [Concomitant]

REACTIONS (4)
  - DELIRIUM [None]
  - DEMENTIA [None]
  - HYPERTONIA [None]
  - TONGUE BLACK HAIRY [None]
